FAERS Safety Report 5603363-4 (Version None)
Quarter: 2008Q1

REPORT INFORMATION
  Report Type: 
  Country: None (occurrence: None)
  Receive Date: 20080122
  Receipt Date: 20080114
  Transmission Date: 20080703
  Serious: Yes (Other)
  Sender: FDA-Public Use
  Company Number: GXKR2008GB00755

PATIENT
  Age: 63 Year
  Sex: Female

DRUGS (2)
  1. CIPROFLOXACIN [Suspect]
     Indication: LOWER RESPIRATORY TRACT INFECTION
  2. ETANERCEPT (ETANERCEPT) [Suspect]
     Indication: PSORIATIC ARTHROPATHY
     Dosage: SUBCUTANEOUS
     Route: 058
     Dates: start: 20070501, end: 20070801

REACTIONS (3)
  - DRUG INTERACTION [None]
  - LOWER RESPIRATORY TRACT INFECTION [None]
  - WHITE BLOOD CELL COUNT DECREASED [None]
